FAERS Safety Report 14182084 (Version 1)
Quarter: 2017Q4

REPORT INFORMATION
  Report Type: Spontaneous
  Country: US (occurrence: US)
  Receive Date: 20171113
  Receipt Date: 20171113
  Transmission Date: 20180321
  Serious: No
  Sender: FDA-Public Use
  Company Number: US-SHIRE-US201727284

PATIENT
  Age: 15 Year
  Sex: Female

DRUGS (1)
  1. VYVANSE [Suspect]
     Active Substance: LISDEXAMFETAMINE DIMESYLATE
     Indication: PRODUCT USED FOR UNKNOWN INDICATION
     Dosage: 20 MG, 1X/WEEK
     Route: 048

REACTIONS (5)
  - Musculoskeletal stiffness [Unknown]
  - Hypoaesthesia [Unknown]
  - Sensory loss [Unknown]
  - Panic reaction [Unknown]
  - Dyspnoea [Unknown]
